FAERS Safety Report 6774546-5 (Version None)
Quarter: 2010Q2

REPORT INFORMATION
  Report Type: 
  Country: None (occurrence: None)
  Receive Date: 20100617
  Receipt Date: 20090930
  Transmission Date: 20101027
  Serious: No
  Sender: FDA-Public Use
  Company Number: A0810184A

PATIENT
  Sex: Female

DRUGS (3)
  1. ZYBAN [Suspect]
     Indication: DRUG USE FOR UNKNOWN INDICATION
     Route: 065
  2. LYRICA [Concomitant]
     Route: 065
  3. AVAPRO [Concomitant]
     Route: 065

REACTIONS (1)
  - VOMITING [None]
